FAERS Safety Report 8459816-7 (Version None)
Quarter: 2012Q2

REPORT INFORMATION
  Report Type: 
  Country: None (occurrence: None)
  Receive Date: 20120622
  Receipt Date: 20120614
  Transmission Date: 20120825
  Serious: Yes (Other)
  Sender: FDA-Public Use
  Company Number: PHHY2012MX045223

PATIENT
  Sex: Male

DRUGS (4)
  1. MESANTOIN [Interacting]
  2. TEGRETOL [Suspect]
     Indication: EPILEPSY
     Dosage: 400 MG, DAILY
     Route: 048
  3. KEPPRA [Concomitant]
     Dosage: 1 DF,DAILY
  4. PHENOBARBITAL TAB [Concomitant]
     Dosage: 1 DF, DAILY

REACTIONS (11)
  - CONVULSION [None]
  - STRESS [None]
  - ARTHROPATHY [None]
  - WEIGHT INCREASED [None]
  - DRUG INEFFECTIVE [None]
  - HEADACHE [None]
  - TACHYCARDIA [None]
  - STEVENS-JOHNSON SYNDROME [None]
  - DRUG INTERACTION [None]
  - HEPATIC STEATOSIS [None]
  - DISTURBANCE IN ATTENTION [None]
